FAERS Safety Report 17555250 (Version 1)
Quarter: 2020Q1

REPORT INFORMATION
  Report Type: Spontaneous
  Country: US (occurrence: US)
  Receive Date: 20200318
  Receipt Date: 20200318
  Transmission Date: 20200409
  Serious: No
  Sender: FDA-Public Use
  Company Number: NVSC2020US075228

PATIENT
  Age: 49 Year
  Sex: Female
  Weight: 70.29 kg

DRUGS (2)
  1. COMBIPATCH [Suspect]
     Active Substance: ESTRADIOL\NORETHINDRONE ACETATE
     Indication: HOT FLUSH
     Dosage: 1 DF
     Route: 062
     Dates: start: 201908, end: 202003
  2. COMBIPATCH [Suspect]
     Active Substance: ESTRADIOL\NORETHINDRONE ACETATE
     Indication: NIGHT SWEATS
     Dosage: 1 DF
     Route: 062
     Dates: start: 20200309, end: 20200311

REACTIONS (3)
  - Application site pruritus [Not Recovered/Not Resolved]
  - Application site bruise [Not Recovered/Not Resolved]
  - Off label use [Recovered/Resolved]
